FAERS Safety Report 6253760-1 (Version None)
Quarter: 2009Q2

REPORT INFORMATION
  Report Type: 
  Country: None (occurrence: None)
  Receive Date: 20090630
  Receipt Date: 20090618
  Transmission Date: 20091009
  Serious: Yes (Hospitalization)
  Sender: FDA-Public Use
  Company Number: TCI2009A01193

PATIENT
  Age: 78 Year
  Sex: Female

DRUGS (16)
  1. TAKEPRON OD TABLETS [Suspect]
     Indication: PROPHYLAXIS AGAINST GASTROINTESTINAL ULCER
     Dosage: 15 MG (15 MG, 1-2) , PER ORAL
     Route: 048
     Dates: start: 20081225, end: 20090311
  2. KENTAN (LOXOPROFEN SODIUM) [Suspect]
     Dosage: 180 MG (60 MG, 3 IN 1 D), PER ORAL
     Route: 048
     Dates: end: 20090311
  3. ACTOS [Concomitant]
  4. BASEN OD TABLETS (VOGLIBOSE) [Concomitant]
  5. OLMESARTAN MEDOXOMIL [Concomitant]
  6. NORVASC [Concomitant]
  7. ZEPOLAS PAP (FLURBIPROFEN) [Concomitant]
  8. COLICOOL (CHLORPHENESIN CARBAMATE) [Concomitant]
  9. SOLON (SOFALCONE) [Concomitant]
  10. CALFINA (ALFACALCIDOL) [Concomitant]
  11. CEFDINIR [Concomitant]
  12. BONALON (ALENDRONIC ACID) [Concomitant]
  13. PRAVASTATIN [Concomitant]
  14. BIASAN (METHOL, SODIUM BICARBONATE, ZANTHOXYLUM CLAVA-HERCULIS, ZINGIB [Concomitant]
  15. LAC B GRANULAR POWDER N (LACTOBACILLUS BIFIDUS, LYOPHILIZED) [Concomitant]
  16. BERIZYM (ENZYMES NOS) [Concomitant]

REACTIONS (4)
  - COLITIS COLLAGENOUS [None]
  - LARGE INTESTINAL ULCER [None]
  - MALAISE [None]
  - SCAR [None]
